FAERS Safety Report 17992047 (Version 1)
Quarter: 2020Q3

REPORT INFORMATION
  Report Type: Spontaneous
  Country: US (occurrence: US)
  Receive Date: 20200707
  Receipt Date: 20200707
  Transmission Date: 20201103
  Serious: No
  Sender: FDA-Public Use
  Company Number: US-BAUSCH-BL-2020-018609

PATIENT
  Age: 60 Year
  Sex: Female

DRUGS (3)
  1. TOBRAMYCIN AND DEXAMETHASONE [Suspect]
     Active Substance: DEXAMETHASONE\TOBRAMYCIN
     Dosage: 0.3 PERCENT/0.1 PERCENT?INSTILLING THE PRODUCT IN BOTH EYE ONCE EVERY OTHER DAY
     Route: 047
     Dates: start: 202006, end: 20200620
  2. TOBRAMYCIN AND DEXAMETHASONE [Suspect]
     Active Substance: DEXAMETHASONE\TOBRAMYCIN
     Indication: EYE INFECTION
     Dosage: 0.3 PERCENT/0.1 PERCENT?1 GTT IN BOTH EYES 3 TIMES DAILY
     Route: 047
     Dates: start: 20200609, end: 202006
  3. TOBRAMYCIN AND DEXAMETHASONE [Suspect]
     Active Substance: DEXAMETHASONE\TOBRAMYCIN
     Indication: CORNEAL ABRASION
     Dosage: 0.3 PERCENT/0.1 PERCENT?INSTILLING THE PRODUCT IN THE RIGHT EYE ONCE DAILY
     Route: 047
     Dates: start: 202006, end: 202006

REACTIONS (5)
  - Treatment noncompliance [Unknown]
  - Lacrimation increased [Recovering/Resolving]
  - Swelling face [Recovering/Resolving]
  - Madarosis [Recovering/Resolving]
  - Hypoaesthesia eye [Recovering/Resolving]

NARRATIVE: CASE EVENT DATE: 20200609
